FAERS Safety Report 17246694 (Version 1)
Quarter: 2020Q1

REPORT INFORMATION
  Report Type: Spontaneous
  Country: US (occurrence: US)
  Receive Date: 20200108
  Receipt Date: 20200108
  Transmission Date: 20200409
  Serious: No
  Sender: FDA-Public Use
  Company Number: US-PFIZER INC-2019505687

PATIENT
  Age: 71 Year
  Sex: Female
  Weight: 106.5 kg

DRUGS (2)
  1. IBRANCE [Suspect]
     Active Substance: PALBOCICLIB
     Indication: BREAST CANCER FEMALE
     Dosage: 125 MG, CYCLIC (CAPSULE BY MOUTH ONCE A DAY FOR 3 WEEKS THEN OFF 1 WEEK)
     Route: 048
  2. IBRANCE [Suspect]
     Active Substance: PALBOCICLIB
     Indication: BREAST CANCER METASTATIC
     Dosage: 250 MG, UNK (POSSIBLY FEW HOURS APART)

REACTIONS (3)
  - Neoplasm progression [Unknown]
  - Extra dose administered [Unknown]
  - Product dose omission [Unknown]
